FAERS Safety Report 6056049-9 (Version None)
Quarter: 2009Q1

REPORT INFORMATION
  Report Type: 
  Country: None (occurrence: None)
  Receive Date: 20090126
  Receipt Date: 20090114
  Transmission Date: 20090719
  Serious: Yes (Life-Threatening, Hospitalization)
  Sender: FDA-Public Use
  Company Number: 1000002979

PATIENT
  Age: 21 Year
  Sex: Female
  Weight: 87 kg

DRUGS (4)
  1. ESCITALOPRAM [Suspect]
     Indication: DEPRESSION
     Dosage: 5 MG (5 MG, 1 IN 1 D) ,ORAL
     Route: 048
     Dates: start: 20081110, end: 20081118
  2. ESCITALOPRAM [Suspect]
     Indication: DYSTHYMIC DISORDER
     Dosage: 5 MG (5 MG, 1 IN 1 D) ,ORAL
     Route: 048
     Dates: start: 20081110, end: 20081118
  3. STRESAM [Concomitant]
  4. TRIELLA (TABLETS) [Concomitant]

REACTIONS (13)
  - AGGRESSION [None]
  - ANXIETY [None]
  - ASPHYXIA [None]
  - CONDITION AGGRAVATED [None]
  - DISTURBANCE IN ATTENTION [None]
  - DRUG WITHDRAWAL SYNDROME [None]
  - DYSPNOEA [None]
  - IRRITABILITY [None]
  - MALAISE [None]
  - PHARYNGEAL OEDEMA [None]
  - SELF-MEDICATION [None]
  - SPEECH DISORDER [None]
  - SWOLLEN TONGUE [None]
